FAERS Safety Report 18418404 (Version 2)
Quarter: 2020Q4

REPORT INFORMATION
  Report Type: Spontaneous
  Country: US (occurrence: US)
  Receive Date: 20201023
  Receipt Date: 20201023
  Transmission Date: 20210114
  Serious: Yes (Hospitalization)
  Sender: FDA-Public Use
  Company Number: US-CELGENEUS-USA-20201002871

PATIENT
  Age: 67 Year
  Sex: Female

DRUGS (45)
  1. POMALYST [Suspect]
     Active Substance: POMALIDOMIDE
     Dosage: 3 MILLIGRAM
     Route: 048
     Dates: start: 201908
  2. BENZONATATE. [Concomitant]
     Active Substance: BENZONATATE
     Indication: COUGH
     Dosage: 300 MILLIGRAM
     Route: 048
     Dates: start: 201909
  3. OMEPRAZOLE. [Concomitant]
     Active Substance: OMEPRAZOLE
     Dosage: 40 MILLIGRAM
     Route: 048
     Dates: start: 202009
  4. TINIDAZOLE. [Concomitant]
     Active Substance: TINIDAZOLE
     Indication: PRODUCT USED FOR UNKNOWN INDICATION
     Dosage: 1000 MILLIGRAM
     Route: 048
     Dates: start: 202006
  5. DEXAMETHASONE. [Concomitant]
     Active Substance: DEXAMETHASONE
     Indication: PRODUCT USED FOR UNKNOWN INDICATION
     Dosage: TAKE 5 TABLETS FOR 1 DAY, THEN TAKE 4 TABLETS FOR 2 DAYS, TAKE 2 TABLETS FOR 2 DAYS, THEN TAKE 1 TAB
     Route: 048
     Dates: start: 202001
  6. FAMOTIDINE. [Concomitant]
     Active Substance: FAMOTIDINE
     Indication: PRODUCT USED FOR UNKNOWN INDICATION
     Dosage: 20 MILLIGRAM
     Route: 048
     Dates: start: 201907
  7. LISINOPRIL. [Concomitant]
     Active Substance: LISINOPRIL
     Indication: PRODUCT USED FOR UNKNOWN INDICATION
     Dosage: 10 MILLIGRAM
     Route: 048
     Dates: start: 201910
  8. METHOCARBAMOL. [Concomitant]
     Active Substance: METHOCARBAMOL
     Dosage: 3000 MILLIGRAM
     Route: 048
     Dates: start: 202002
  9. METOCLOPRAMIDE. [Concomitant]
     Active Substance: METOCLOPRAMIDE
     Indication: PAIN
     Dosage: 40 MILLIGRAM
     Route: 048
     Dates: start: 201907
  10. OMEPRAZOLE. [Concomitant]
     Active Substance: OMEPRAZOLE
     Dosage: 40 MILLIGRAM 30 MINUTES BEFORE BREAKFAST  ON AN EMPTY STOMACH
     Route: 048
     Dates: start: 201909
  11. ONDANSETRON [Concomitant]
     Active Substance: ONDANSETRON
     Dosage: 4 MILLIGRAM DISSOLVE 1 TABLET ON THE TONGUE
     Route: 048
     Dates: start: 202002
  12. OXYCODONE [Concomitant]
     Active Substance: OXYCODONE
     Indication: PAIN
     Dosage: 10 MILLIGRAM
     Route: 048
     Dates: start: 201905
  13. OXYCODONE [Concomitant]
     Active Substance: OXYCODONE
     Dosage: 10 MILLIGRAM MAX DAILY AMOUNT 40 MG
     Route: 048
     Dates: start: 202010
  14. SUCRALFATE. [Concomitant]
     Active Substance: SUCRALFATE
     Indication: PRODUCT USED FOR UNKNOWN INDICATION
     Dosage: 4 GRAM
     Route: 048
     Dates: start: 201907
  15. CEFDINIR. [Concomitant]
     Active Substance: CEFDINIR
     Indication: PRODUCT USED FOR UNKNOWN INDICATION
     Dosage: 600 MILLIGRAM
     Route: 048
     Dates: start: 201912
  16. LORAZEPAM. [Concomitant]
     Active Substance: LORAZEPAM
     Indication: PRODUCT USED FOR UNKNOWN INDICATION
     Dosage: TAKE 1 MILLIGRAM 2 HOURS PRIOR TO INJECTION
     Route: 048
     Dates: start: 201910
  17. OSELTAMIVIR [Concomitant]
     Active Substance: OSELTAMIVIR
     Indication: PRODUCT USED FOR UNKNOWN INDICATION
     Dosage: 150 MILLIGRAM
     Route: 048
     Dates: start: 202002
  18. POTASSIUM CL [Concomitant]
     Active Substance: POTASSIUM CHLORIDE
     Indication: PRODUCT USED FOR UNKNOWN INDICATION
     Dosage: 10 MILLIEQUIVALENTS
     Route: 048
     Dates: start: 201903
  19. PREDNISONE. [Concomitant]
     Active Substance: PREDNISONE
     Dosage: TAKE 4 TABLET BY MOUTH DAILY 3 DAYS, 3 TABLETS DAILY 3 DAYS, 2 TABLETS DAILY 3 DAYS , THEN 1 TABLET
     Route: 048
     Dates: start: 201909
  20. POMALYST [Suspect]
     Active Substance: POMALIDOMIDE
     Indication: PLASMA CELL MYELOMA
     Dosage: 4 MILLIGRAM
     Route: 048
     Dates: start: 201904
  21. PREDNISONE. [Concomitant]
     Active Substance: PREDNISONE
     Indication: PRODUCT USED FOR UNKNOWN INDICATION
     Dosage: 40 MILLIGRAM WITH BREAKFAST FOR 5 DAYS
     Route: 048
     Dates: start: 201909
  22. LEVALBUTEROL HFA [Concomitant]
     Indication: PRODUCT USED FOR UNKNOWN INDICATION
     Dosage: INH (200PF) 15 GRAM
     Route: 048
     Dates: start: 201910
  23. LOPERAMIDE [Concomitant]
     Active Substance: LOPERAMIDE
     Indication: PRODUCT USED FOR UNKNOWN INDICATION
     Route: 048
  24. POMALYST [Suspect]
     Active Substance: POMALIDOMIDE
     Dosage: 1 MILLIGRAM
     Route: 048
     Dates: start: 202002
  25. AZITHROMYCIN ANHYDROUS. [Concomitant]
     Active Substance: AZITHROMYCIN ANHYDROUS
     Indication: PRODUCT USED FOR UNKNOWN INDICATION
     Dosage: 500 MILLIGRAM
     Route: 048
     Dates: start: 201909
  26. DEXAMETHASONE. [Concomitant]
     Active Substance: DEXAMETHASONE
     Dosage: 4 MILLIGRAM
     Route: 048
     Dates: start: 202008
  27. LORAZEPAM. [Concomitant]
     Active Substance: LORAZEPAM
     Dosage: TAKE 1 MORE TABLET 30 MINUTES PRIOR TO INJECTION
     Route: 048
     Dates: start: 202008
  28. OMEPRAZOLE. [Concomitant]
     Active Substance: OMEPRAZOLE
     Indication: PRODUCT USED FOR UNKNOWN INDICATION
     Dosage: 40 MILLIGRAM
     Route: 048
     Dates: start: 201903
  29. OXYCODONE AND ACETAMINOPHEN [Concomitant]
     Active Substance: ACETAMINOPHEN\OXYCODONE HYDROCHLORIDE
     Indication: PAIN
     Dosage: 5-325 MG
     Route: 048
     Dates: start: 201907
  30. POMALYST [Suspect]
     Active Substance: POMALIDOMIDE
     Dosage: 1 MILLIGRAM
     Route: 048
     Dates: start: 20200326, end: 20201013
  31. AMLODIPINE BESYLATE. [Concomitant]
     Active Substance: AMLODIPINE BESYLATE
     Indication: PRODUCT USED FOR UNKNOWN INDICATION
     Dosage: 5 MILLIGRAM
     Route: 048
     Dates: start: 201910
  32. HYDROCODONE/ CHLORPHEN ER [Concomitant]
     Indication: COUGH
     Dosage: 5 MILLILITER
     Route: 048
     Dates: start: 201912
  33. METHOCARBAMOL. [Concomitant]
     Active Substance: METHOCARBAMOL
     Indication: PAIN
     Dosage: 3000 MILLIGRAM
     Route: 048
     Dates: start: 201907
  34. OMEPRAZOLE. [Concomitant]
     Active Substance: OMEPRAZOLE
     Dosage: 40 MILLIGRAM
     Route: 048
     Dates: start: 201905
  35. ONDANSETRON [Concomitant]
     Active Substance: ONDANSETRON
     Dosage: 4 MILLIGRAM PLACE ONE TABLET ON THE TONGUE AND ALLOW TO DISSOLVE AS NEEDED EVERY 6 TO 8 HOURS AS NEE
     Route: 048
     Dates: start: 201912
  36. ONDANSETRON [Concomitant]
     Active Substance: ONDANSETRON
     Dosage: 4 MILLIGRAM DISSOLVE 1 TABLET ON THE TONGUE
     Route: 048
     Dates: start: 202006
  37. POMALYST [Suspect]
     Active Substance: POMALIDOMIDE
     Dosage: 4 MILLIGRAM
     Route: 048
     Dates: start: 20190718
  38. GABAPENTIN. [Suspect]
     Active Substance: GABAPENTIN
     Indication: BACK PAIN
     Dosage: 900 MILLIGRAM
     Route: 048
     Dates: start: 202010
  39. ACYCLOVIR. [Concomitant]
     Active Substance: ACYCLOVIR
     Indication: PRODUCT USED FOR UNKNOWN INDICATION
     Dosage: 800 MILLIGRAM
     Route: 048
     Dates: start: 202002
  40. BREO ELLIPTA [Concomitant]
     Active Substance: FLUTICASONE FUROATE\VILANTEROL TRIFENATATE
     Indication: PRODUCT USED FOR UNKNOWN INDICATION
     Dosage: 100-25MCG (INH30)
     Route: 048
     Dates: start: 201909
  41. CEPHALEXIN. [Concomitant]
     Active Substance: CEPHALEXIN
     Indication: PRODUCT USED FOR UNKNOWN INDICATION
     Dosage: 1000 MILLIGRAM
     Route: 048
     Dates: start: 202006
  42. ONDANSETRON [Concomitant]
     Active Substance: ONDANSETRON
     Indication: NAUSEA
     Dosage: 4 MILLIGRAM
     Route: 048
     Dates: start: 201905
  43. POTASSIUM CL [Concomitant]
     Active Substance: POTASSIUM CHLORIDE
     Dosage: 10 MILLIEQUIVALENTS
     Route: 048
     Dates: start: 201910
  44. DARZALEX [Concomitant]
     Active Substance: DARATUMUMAB
     Indication: PRODUCT USED FOR UNKNOWN INDICATION
     Dosage: 100MG/5ML 1 VIAL
     Route: 065
  45. IBUPROFEN. [Concomitant]
     Active Substance: IBUPROFEN
     Indication: PRODUCT USED FOR UNKNOWN INDICATION
     Route: 065

REACTIONS (4)
  - Back pain [Not Recovered/Not Resolved]
  - Vertebral column mass [Not Recovered/Not Resolved]
  - Depression [Not Recovered/Not Resolved]
  - Plasma cell myeloma [Not Recovered/Not Resolved]

NARRATIVE: CASE EVENT DATE: 202010
